FAERS Safety Report 14925270 (Version 1)
Quarter: 2018Q2

REPORT INFORMATION
  Report Type: Spontaneous
  Country: GB (occurrence: GB)
  Receive Date: 20180522
  Receipt Date: 20180522
  Transmission Date: 20180711
  Serious: Yes (Hospitalization)
  Sender: FDA-Public Use
  Company Number: GB-BAYER-2018-093551

PATIENT
  Sex: Female

DRUGS (1)
  1. PROGYNOVA? TS 50 MICROGRAMS/24 HOURS TRANSDERMAL P [Suspect]
     Active Substance: ESTRADIOL VALERATE
     Dosage: 50 MCG/24HR, UNK
     Route: 062

REACTIONS (1)
  - Mental disorder [None]
